FAERS Safety Report 13525847 (Version 1)
Quarter: 2017Q2

REPORT INFORMATION
  Report Type: Spontaneous
  Country: US (occurrence: US)
  Receive Date: 20170509
  Receipt Date: 20170509
  Transmission Date: 20170830
  Serious: Yes (Death)
  Sender: FDA-Public Use
  Company Number: PHEH2017US013641

PATIENT
  Sex: Male

DRUGS (1)
  1. VOTRIENT [Suspect]
     Active Substance: PAZOPANIB HYDROCHLORIDE
     Indication: RENAL CELL CARCINOMA
     Dosage: 600 MG, QD
     Route: 048
     Dates: start: 20161105

REACTIONS (3)
  - Renal cell carcinoma [Fatal]
  - Malignant neoplasm progression [Fatal]
  - Metastases to bone [Fatal]

NARRATIVE: CASE EVENT DATE: 20161105
